FAERS Safety Report 8178708-4 (Version None)
Quarter: 2012Q1

REPORT INFORMATION
  Report Type: 
  Country: None (occurrence: None)
  Receive Date: 20120301
  Receipt Date: 20120223
  Transmission Date: 20120608
  Serious: Yes (Other)
  Sender: FDA-Public Use
  Company Number: FR-ASTRAZENECA-2012SE12545

PATIENT
  Sex: Male

DRUGS (3)
  1. QUETIAPINE FUMARATE [Suspect]
     Route: 048
  2. DEPAKOTE [Concomitant]
  3. EXFORGE [Concomitant]
     Indication: HYPERTENSION

REACTIONS (2)
  - DYSPNOEA [None]
  - GENERALISED OEDEMA [None]
